FAERS Safety Report 11374242 (Version 2)
Quarter: 2015Q4

REPORT INFORMATION
  Report Type: Spontaneous
  Country: US (occurrence: US)
  Receive Date: 20150812
  Receipt Date: 20151028
  Transmission Date: 20160304
  Serious: Yes (Hospitalization, Disabling)
  Sender: FDA-Public Use
  Company Number: US-ENDO PHARMACEUTICALS INC.-2015-002215

PATIENT
  Age: 67 Year
  Sex: Male
  Weight: 93.07 kg

DRUGS (4)
  1. NATESTO [Suspect]
     Active Substance: TESTOSTERONE
     Indication: ANDROGEN REPLACEMENT THERAPY
     Route: 045
     Dates: start: 201509
  2. TESTIM [Suspect]
     Active Substance: TESTOSTERONE
     Indication: ANDROGEN REPLACEMENT THERAPY
     Route: 062
     Dates: start: 20080611, end: 201003
  3. ANDROGEL [Suspect]
     Active Substance: TESTOSTERONE
     Indication: ANDROGEN REPLACEMENT THERAPY
     Route: 065
     Dates: start: 2010, end: 2015
  4. FORTESTA [Suspect]
     Active Substance: TESTOSTERONE
     Indication: ANDROGEN REPLACEMENT THERAPY
     Route: 061
     Dates: start: 201203, end: 201208

REACTIONS (4)
  - Cerebrovascular accident [Not Recovered/Not Resolved]
  - Angiogram cerebral abnormal [Unknown]
  - Cerebral haemorrhage [Not Recovered/Not Resolved]
  - Lacunar infarction [Unknown]

NARRATIVE: CASE EVENT DATE: 20131118
